FAERS Safety Report 5098184-8 (Version None)
Quarter: 2006Q3

REPORT INFORMATION
  Report Type: 
  Country: None (occurrence: None)
  Receive Date: 20060906
  Receipt Date: 20060518
  Transmission Date: 20061208
  Serious: No
  Sender: FDA-Public Use
  Company Number: US-GLAXOSMITHKLINE-A0606219A

PATIENT
  Age: 78 Year
  Sex: Male

DRUGS (11)
  1. REQUIP [Suspect]
     Indication: RESTLESS LEGS SYNDROME
     Dosage: 1TAB AT NIGHT
     Route: 048
     Dates: start: 20060506
  2. LIPITOR [Concomitant]
  3. COREG [Concomitant]
  4. ASPIRIN [Concomitant]
  5. UNKNOWN MEDICATION [Concomitant]
  6. NEXIUM [Concomitant]
  7. ADVAIR DISKUS 100/50 [Concomitant]
  8. NASONEX [Concomitant]
  9. AVODART [Concomitant]
  10. CLONAZEPAM [Concomitant]
  11. MELATONIN [Concomitant]

REACTIONS (1)
  - DRUG INEFFECTIVE [None]
